FAERS Safety Report 21248666 (Version 1)
Quarter: 2022Q3

REPORT INFORMATION
  Report Type: Spontaneous
  Country: US (occurrence: US)
  Receive Date: 20220824
  Receipt Date: 20220824
  Transmission Date: 20221027
  Serious: Yes (Other)
  Sender: FDA-Public Use
  Company Number: US-BRISTOL-MYERS SQUIBB COMPANY-2022-092871

PATIENT
  Age: 69 Year
  Sex: Female

DRUGS (11)
  1. REVLIMID [Suspect]
     Active Substance: LENALIDOMIDE
     Indication: Plasma cell myeloma
     Dosage: DAILY
     Route: 048
     Dates: start: 20210416
  2. DARZALEX IOOMG/5ML INJ, 1 VIAL [Concomitant]
     Indication: Product used for unknown indication
     Route: 065
  3. CALCIUM 500 W/VIT D3 TABLETS [Concomitant]
     Indication: Product used for unknown indication
     Route: 065
  4. COMPLEX B-50 TABLETS [Concomitant]
     Indication: Product used for unknown indication
     Route: 065
  5. GLUCOS/CHOND COMPLEX TABS 80^S [Concomitant]
     Indication: Product used for unknown indication
     Route: 065
  6. HAIR SKIN AND NAILS FORMULA TABLETS [Concomitant]
     Indication: Product used for unknown indication
     Route: 065
  7. POTASSIUM CHLORIDE ER 8MEQ TABLETS [Concomitant]
     Indication: Product used for unknown indication
     Route: 065
  8. CHLORTHALIDONE 25MG TABLETS [Concomitant]
     Indication: Product used for unknown indication
     Route: 065
  9. ASPIRIN 81MG EC LOW DOSE TABLETS [Concomitant]
     Indication: Product used for unknown indication
     Route: 065
  10. DEXAMETHASONE 4MG TABLETS [Concomitant]
     Indication: Product used for unknown indication
     Route: 065
  11. VALACYCLOVIR HYDROCHLORIDE [Concomitant]
     Active Substance: VALACYCLOVIR HYDROCHLORIDE
     Indication: Product used for unknown indication
     Route: 065

REACTIONS (1)
  - Red blood cell count decreased [Unknown]

NARRATIVE: CASE EVENT DATE: 20220808
